FAERS Safety Report 9377151 (Version 1)
Quarter: 2013Q3

REPORT INFORMATION
  Report Type: Spontaneous
  Country: US (occurrence: US)
  Receive Date: 20130701
  Receipt Date: 20130701
  Transmission Date: 20140515
  Serious: Yes (Hospitalization)
  Sender: FDA-Public Use
  Company Number: US-PERRIGO-13US006690

PATIENT
  Age: 58 Year
  Sex: Female

DRUGS (2)
  1. ACETAMINOPHEN 650MG ER 544 [Suspect]
     Indication: PAIN
     Dosage: GREATER THAN 4 GM, QD
     Route: 048
  2. ALCOHOL [Suspect]
     Indication: PRODUCT USED FOR UNKNOWN INDICATION
     Dosage: UNK, UNK
     Route: 048

REACTIONS (9)
  - Mental impairment [Unknown]
  - Nausea [Unknown]
  - Vomiting [Unknown]
  - Diarrhoea [Unknown]
  - Metabolic acidosis [Recovering/Resolving]
  - Leukocytosis [Unknown]
  - Pyroglutamate increased [Unknown]
  - Toxicity to various agents [Recovering/Resolving]
  - Overdose [Recovered/Resolved]
